FAERS Safety Report 5357470-4 (Version None)
Quarter: 2007Q2

REPORT INFORMATION
  Report Type: 
  Country: None (occurrence: None)
  Receive Date: 20070614
  Receipt Date: 20070602
  Transmission Date: 20071010
  Serious: Yes (Other)
  Sender: FDA-Public Use
  Company Number: CA-PFIZER INC-2007046705

PATIENT

DRUGS (1)
  1. FRAGMIN [Suspect]

REACTIONS (3)
  - DEEP VEIN THROMBOSIS [None]
  - OPERATIVE HAEMORRHAGE [None]
  - PULMONARY EMBOLISM [None]
